FAERS Safety Report 14315377 (Version 2)
Quarter: 2018Q1

REPORT INFORMATION
  Report Type: Report from Study
  Country: US (occurrence: US)
  Receive Date: 20171221
  Receipt Date: 20180308
  Transmission Date: 20180509
  Serious: Yes (Other)
  Sender: FDA-Public Use
  Company Number: US-ACTELION-A-NJ2017-164443

PATIENT
  Age: 28 Year
  Sex: Female
  Weight: 54.88 kg

DRUGS (8)
  1. LETAIRIS [Concomitant]
     Active Substance: AMBRISENTAN
  2. ADEMPAS [Concomitant]
     Active Substance: RIOCIGUAT
  3. RANITIDINE. [Concomitant]
     Active Substance: RANITIDINE
  4. LOPERAMIDE [Concomitant]
     Active Substance: LOPERAMIDE
  5. NAPROXEN. [Concomitant]
     Active Substance: NAPROXEN
  6. UPTRAVI [Suspect]
     Active Substance: SELEXIPAG
     Indication: PULMONARY ARTERIAL HYPERTENSION
     Dosage: 800 MCG, BID
     Route: 048
     Dates: start: 20170812
  7. IPRATROPIUM [Concomitant]
     Active Substance: IPRATROPIUM
  8. ONDANSETRON [Concomitant]
     Active Substance: ONDANSETRON

REACTIONS (1)
  - Malignant melanoma [Recovered/Resolved]
